FAERS Safety Report 8358812-8 (Version None)
Quarter: 2012Q2

REPORT INFORMATION
  Report Type: 
  Country: None (occurrence: None)
  Receive Date: 20120514
  Receipt Date: 20120501
  Transmission Date: 20120825
  Serious: Yes (Hospitalization, Other)
  Sender: FDA-Public Use
  Company Number: US-MYLANLABS-2008AL010868

PATIENT
  Age: 29 Year
  Sex: Female
  Weight: 86.18 kg

DRUGS (4)
  1. POTASSIUM CHLORIDE [Concomitant]
  2. LOTENSIN [Concomitant]
  3. LASIX [Concomitant]
     Route: 048
  4. DIGOXIN [Suspect]
     Route: 048
     Dates: start: 19961006, end: 20081208

REACTIONS (14)
  - ASTHENIA [None]
  - CARDIOMYOPATHY [None]
  - CARDIAC FAILURE CONGESTIVE [None]
  - PAIN [None]
  - INJURY [None]
  - VENTRICULAR HYPOKINESIA [None]
  - ADVERSE DRUG REACTION [None]
  - CARDIAC MONITORING [None]
  - MITRAL VALVE INCOMPETENCE [None]
  - EMOTIONAL DISTRESS [None]
  - DIURETIC THERAPY [None]
  - VENTRICULAR DYSFUNCTION [None]
  - ECONOMIC PROBLEM [None]
  - ANXIETY [None]
